FAERS Safety Report 25000181 (Version 2)
Quarter: 2025Q3

REPORT INFORMATION
  Report Type: Spontaneous
  Country: US (occurrence: US)
  Receive Date: 20250222
  Receipt Date: 20250927
  Transmission Date: 20251021
  Serious: No
  Sender: SANOFI AVENTIS
  Company Number: US-SA-2025SA049403

PATIENT
  Age: 41 Year
  Sex: Female

DRUGS (3)
  1. DUPIXENT [Suspect]
     Active Substance: DUPILUMAB
     Indication: Dermatitis atopic
     Dosage: 300 MG, QOW
     Route: 058
     Dates: start: 202309
  2. DUPIXENT [Suspect]
     Active Substance: DUPILUMAB
     Indication: Dyshidrotic eczema
  3. ENTYVIO [Concomitant]
     Active Substance: VEDOLIZUMAB
     Indication: Proctitis ulcerative

REACTIONS (9)
  - Gastrointestinal disorder [Unknown]
  - Condition aggravated [Unknown]
  - Faecal calprotectin increased [Unknown]
  - Condition aggravated [Unknown]
  - Dermatitis atopic [Recovered/Resolved]
  - Rash erythematous [Unknown]
  - Pruritus [Unknown]
  - Skin burning sensation [Unknown]
  - Product use in unapproved indication [Unknown]

NARRATIVE: CASE EVENT DATE: 20230901
